FAERS Safety Report 8224290-2 (Version None)
Quarter: 2012Q1

REPORT INFORMATION
  Report Type: 
  Country: None (occurrence: None)
  Receive Date: 20120321
  Receipt Date: 20120316
  Transmission Date: 20120608
  Serious: Yes (Life-Threatening)
  Sender: FDA-Public Use
  Company Number: DE-ASTELLAS-2012EU002054

PATIENT
  Sex: Female
  Weight: 74 kg

DRUGS (1)
  1. MICAFUNGIN INJECTION [Suspect]
     Dosage: UNK
     Route: 065

REACTIONS (1)
  - COLITIS ULCERATIVE [None]
